FAERS Safety Report 9646438 (Version 1)
Quarter: 2013Q4

REPORT INFORMATION
  Report Type: Spontaneous
  Country: CA (occurrence: CA)
  Receive Date: 20131025
  Receipt Date: 20131025
  Transmission Date: 20140711
  Serious: Yes (Other)
  Sender: FDA-Public Use
  Company Number: PHHY2013CA118255

PATIENT
  Age: 55 Year
  Sex: Male

DRUGS (5)
  1. FIORINAL /OLD FORMULA/ [Suspect]
     Dosage: 6 DF (OF FIORINAL 1/2), DAILY
  2. FIORINAL /OLD FORMULA/ [Suspect]
     Dosage: UNK (FIORINAL 1/4)
  3. DILAUDID [Suspect]
     Dosage: UNK UKN, UNK
  4. MORPHINE [Suspect]
     Dosage: UNK UKN, UNK
  5. CODEINE PHOSPHATE [Suspect]
     Dosage: UNK UKN, UNK

REACTIONS (16)
  - Cerebrovascular accident [Unknown]
  - Dysarthria [Unknown]
  - Gait disturbance [Unknown]
  - Hypersomnia [Unknown]
  - General physical health deterioration [Unknown]
  - Nausea [Unknown]
  - Abasia [Unknown]
  - Abnormal behaviour [Unknown]
  - Staring [Unknown]
  - Balance disorder [Unknown]
  - Myalgia [Unknown]
  - Musculoskeletal stiffness [Unknown]
  - Performance status decreased [Unknown]
  - Tremor [Unknown]
  - Mental impairment [Unknown]
  - Headache [Unknown]
